FAERS Safety Report 6585558-9 (Version None)
Quarter: 2010Q1

REPORT INFORMATION
  Report Type: 
  Country: None (occurrence: None)
  Receive Date: 20100201
  Receipt Date: 20091106
  Transmission Date: 20100710
  Serious: Yes (Other)
  Sender: FDA-Public Use
  Company Number: 8054262

PATIENT
  Sex: Female
  Weight: 53.6 kg

DRUGS (4)
  1. KEPPRA [Suspect]
     Indication: CONVULSION
     Dosage: 1000 MG TID, DAILY ORAL : 1500 MG TID, DAILY ORAL
     Route: 048
     Dates: start: 20091001
  2. LACOSAMIDE [Suspect]
     Indication: CONVULSION
     Dosage: 200 MG BID, DAILY ORAL : 100 MG BID, DAILY ORAL
     Route: 048
     Dates: start: 20090101, end: 20091001
  3. LACOSAMIDE [Suspect]
     Indication: CONVULSION
     Dosage: 200 MG BID, DAILY ORAL : 100 MG BID, DAILY ORAL
     Route: 048
     Dates: start: 20091001
  4. LYRICA [Concomitant]

REACTIONS (3)
  - ACNE [None]
  - DEPRESSION SUICIDAL [None]
  - FATIGUE [None]
